FAERS Safety Report 7052809-6 (Version None)
Quarter: 2010Q4

REPORT INFORMATION
  Report Type: 
  Country: None (occurrence: None)
  Receive Date: 20101012
  Receipt Date: 20101001
  Transmission Date: 20110411
  Serious: Yes (Other)
  Sender: FDA-Public Use
  Company Number: 2010SP039307

PATIENT
  Age: 39 Year
  Sex: Female
  Weight: 55 kg

DRUGS (2)
  1. PEG-INTRON [Suspect]
     Indication: HEPATITIS C
     Dosage: 100 MCG;QW;SC ; 0.4 ML;QW;SC
     Route: 058
     Dates: start: 20100115
  2. REBETOL [Suspect]
     Indication: HEPATITIS C
     Dosage: 200 MG
     Dates: start: 20100115

REACTIONS (7)
  - BLOOD THYROID STIMULATING HORMONE DECREASED [None]
  - NEPHROGENIC DIABETES INSIPIDUS [None]
  - PRURITUS [None]
  - RASH [None]
  - RENAL TUBULAR DISORDER [None]
  - WEIGHT DECREASED [None]
  - XEROSIS [None]
